FAERS Safety Report 15251289 (Version 1)
Quarter: 2018Q3

REPORT INFORMATION
  Report Type: Spontaneous
  Country: IL (occurrence: IL)
  Receive Date: 20180807
  Receipt Date: 20180807
  Transmission Date: 20181010
  Serious: Yes (Death, Other)
  Sender: FDA-Public Use
  Company Number: IL-BAYER-2018-140684

PATIENT
  Sex: Female

DRUGS (1)
  1. XOFIGO [Suspect]
     Active Substance: RADIUM RA-223 DICHLORIDE
     Indication: BREAST CANCER
     Dosage: UNK

REACTIONS (3)
  - Pancytopenia [None]
  - Thrombocytopenia [None]
  - Death [Fatal]
